FAERS Safety Report 7557284-0 (Version None)
Quarter: 2011Q2

REPORT INFORMATION
  Report Type: 
  Country: None (occurrence: None)
  Receive Date: 20110620
  Receipt Date: 20080903
  Transmission Date: 20111010
  Serious: Yes (Hospitalization, Other)
  Sender: FDA-Public Use
  Company Number: PHHY2008US10657

PATIENT
  Sex: Female

DRUGS (14)
  1. EXJADE [Suspect]
     Dosage: 250 MG, QID
     Route: 048
     Dates: start: 20080528
  2. IMIPENEM [Concomitant]
     Dosage: UNK
  3. SYNTHROID [Concomitant]
     Dosage: 0.1 MG, QD
  4. POTASSIUM CHLORIDE [Concomitant]
     Dosage: 20 MEQ, QOD
  5. RITALIN [Concomitant]
     Indication: APPETITE DISORDER
     Dosage: 5 MG 1 IN MORNING AND 1 AT 12:00 PM
  6. NOVOLOG [Concomitant]
     Dosage: UNK
  7. MAGNESIUM OXIDE [Concomitant]
     Dosage: 400 MG, BID
  8. CYCLOSPORINE [Concomitant]
     Dosage: 75 MG, QD
  9. VORICONAZOLE [Concomitant]
     Dosage: 200 MG, BID
  10. PROTONIX [Concomitant]
     Dosage: 40 MG, BID
  11. NORVASC [Concomitant]
     Dosage: 5 MG, QD
  12. CALCIUM CARBONATE [Concomitant]
     Dosage: 650 MG, QD
  13. LANTUS [Concomitant]
     Dosage: 10 U, QHS
  14. MOXIFLOXACIN [Concomitant]
     Dosage: 400 MG, QD
     Dates: end: 20080614

REACTIONS (20)
  - CONFUSIONAL STATE [None]
  - HAEMATOCRIT DECREASED [None]
  - BLOOD POTASSIUM DECREASED [None]
  - BLOOD ALKALINE PHOSPHATASE INCREASED [None]
  - BLOOD IMMUNOGLOBULIN A DECREASED [None]
  - C-REACTIVE PROTEIN INCREASED [None]
  - PYREXIA [None]
  - VOMITING [None]
  - HAEMOGLOBIN DECREASED [None]
  - CHILLS [None]
  - BLOOD LACTATE DEHYDROGENASE INCREASED [None]
  - RED BLOOD CELL COUNT DECREASED [None]
  - BLOOD GLUCOSE INCREASED [None]
  - DECREASED APPETITE [None]
  - WHITE BLOOD CELL COUNT DECREASED [None]
  - INFECTION [None]
  - ABDOMINAL PAIN UPPER [None]
  - NAUSEA [None]
  - HEADACHE [None]
  - BLOOD MAGNESIUM INCREASED [None]
